FAERS Safety Report 7527084-6 (Version None)
Quarter: 2011Q2

REPORT INFORMATION
  Report Type: 
  Country: None (occurrence: None)
  Receive Date: 20110606
  Receipt Date: 20110526
  Transmission Date: 20111010
  Serious: Yes (Disabling, Other)
  Sender: FDA-Public Use
  Company Number: US-MYLANLABS-2011S1011192

PATIENT
  Age: 50 Year
  Sex: Female
  Weight: 104.01 kg

DRUGS (11)
  1. TRAZODONE HCL [Suspect]
     Indication: SLEEP DISORDER
     Route: 048
  2. NORCO [Concomitant]
     Indication: PAIN
     Dosage: FOR CHRONIC PAIN AND HERNIATED DISC
     Route: 048
  3. LYRICA [Concomitant]
     Indication: FIBROMYALGIA
     Route: 048
  4. EFFEXOR [Suspect]
     Indication: SUICIDAL IDEATION
     Route: 048
  5. SOMA [Concomitant]
     Indication: MUSCLE SPASMS
     Dosage: FOR FIBROMYALGIA AND MUSCLE SPASMS
     Route: 048
  6. LAMICTAL [Concomitant]
     Indication: INSOMNIA
     Route: 048
  7. GEODON [Suspect]
     Indication: INSOMNIA
     Route: 048
     Dates: start: 20110506
  8. EFFEXOR [Suspect]
     Indication: DEPRESSION
     Route: 048
  9. AMITRIPTYLINE HCL [Suspect]
  10. GEODON [Suspect]
     Indication: BIPOLAR DISORDER
     Route: 048
     Dates: start: 20110506
  11. EFFEXOR [Suspect]
     Indication: BIPOLAR DISORDER
     Route: 048

REACTIONS (6)
  - INSOMNIA [None]
  - FEELING ABNORMAL [None]
  - WEIGHT INCREASED [None]
  - GAIT DISTURBANCE [None]
  - SUICIDAL IDEATION [None]
  - HEADACHE [None]
